FAERS Safety Report 8306252-X (Version None)
Quarter: 2012Q2

REPORT INFORMATION
  Report Type: 
  Country: None (occurrence: None)
  Receive Date: 20120423
  Receipt Date: 20120417
  Transmission Date: 20120825
  Serious: No
  Sender: FDA-Public Use
  Company Number: US-PFIZER INC-2012096250

PATIENT
  Sex: Male
  Weight: 107 kg

DRUGS (2)
  1. TOVIAZ [Suspect]
     Indication: URINARY INCONTINENCE
     Dosage: 4 MG, DAILY
     Dates: start: 20110101, end: 20120101
  2. METHADONE [Suspect]
     Indication: DRUG DEPENDENCE
     Dosage: 180 MG, DAILY

REACTIONS (3)
  - MALAISE [None]
  - THERAPEUTIC RESPONSE UNEXPECTED [None]
  - HYPERHIDROSIS [None]
